FAERS Safety Report 4353086-7 (Version None)
Quarter: 2004Q2

REPORT INFORMATION
  Report Type: 
  Country: None (occurrence: None)
  Receive Date: 20040429
  Receipt Date: 20040426
  Transmission Date: 20050107
  Serious: Yes (Other)
  Sender: FDA-Public Use
  Company Number: 2003158182IE

PATIENT
  Age: 52 Year
  Sex: Male
  Weight: 93 kg

DRUGS (3)
  1. GENOTROPIN [Suspect]
     Indication: HYPOPITUITARISM
     Dosage: 0.8IU, SUBCUTANEOUS
     Route: 058
     Dates: start: 19980912, end: 19981111
  2. HYDROCORTISONE [Concomitant]
  3. SUSTANON (TESTOSTERONE PROPIONATE TESTOSTERONE PHENYLPROPIONATE, TESTO [Concomitant]

REACTIONS (2)
  - CRANIOPHARYNGIOMA [None]
  - NEOPLASM RECURRENCE [None]
